FAERS Safety Report 16363632 (Version 1)
Quarter: 2019Q2

REPORT INFORMATION
  Report Type: Spontaneous
  Country: DK (occurrence: DK)
  Receive Date: 20190528
  Receipt Date: 20190528
  Transmission Date: 20190711
  Serious: Yes (Life-Threatening, Hospitalization)
  Sender: FDA-Public Use
  Company Number: DK-MYLANLABS-2019M1048551

PATIENT
  Age: 61 Year
  Sex: Male

DRUGS (13)
  1. GLYOKTYL [Concomitant]
     Indication: CONSTIPATION
     Dosage: STYRKE: 6+770MG/ML
     Route: 054
     Dates: start: 20180801
  2. SODIUM PICOSULFATE [Concomitant]
     Active Substance: SODIUM PICOSULFATE
     Indication: CONSTIPATION
     Dosage: STYRKE: 7,5 MG/ML
     Route: 048
     Dates: start: 20180401
  3. ERGOCALCIFEROL. [Concomitant]
     Active Substance: ERGOCALCIFEROL
     Indication: VITAMIN SUPPLEMENTATION
     Dosage: STYRKE: 50.000 ENHEDER
     Route: 048
     Dates: start: 20180328
  4. FOLIMET [Concomitant]
     Active Substance: FOLIC ACID
     Indication: VITAMIN SUPPLEMENTATION
     Dosage: STYRKE: 5 MG
     Route: 048
     Dates: start: 20180329
  5. ETALPHA [Concomitant]
     Active Substance: ALFACALCIDOL
     Indication: CALCIUM METABOLISM DISORDER
     Dosage: STYRKE: 1 MIKROGRAM
     Route: 048
     Dates: start: 20171113
  6. ZOPICLONE [Concomitant]
     Active Substance: ZOPICLONE
     Indication: INSOMNIA
     Dosage: STYRKE: 7,5 MG.
     Route: 048
     Dates: start: 20180330
  7. ASCORBIC ACID. [Concomitant]
     Active Substance: ASCORBIC ACID
     Indication: VITAMIN SUPPLEMENTATION
     Dosage: STYRKE: 80 MG.
     Route: 048
     Dates: start: 20180329
  8. GANGIDEN [Concomitant]
     Indication: PRODUCT USED FOR UNKNOWN INDICATION
  9. MYLAN-BACLOFEN [Suspect]
     Active Substance: BACLOFEN
     Indication: MUSCLE SPASMS
     Dosage: DOSIS: 1-2 TABLETTER DAGLIGT P.N. - EVT MERE,  STYRKE: 10 MG.
     Route: 048
     Dates: start: 2004, end: 20181008
  10. RENVELA [Concomitant]
     Active Substance: SEVELAMER CARBONATE
     Indication: HYPERPHOSPHATAEMIA
     Dosage: STYRKE: 800 MG.
     Route: 048
     Dates: start: 20180117
  11. COSOPT [Concomitant]
     Active Substance: DORZOLAMIDE HYDROCHLORIDE\TIMOLOL MALEATE
     Indication: GLAUCOMA
     Dosage: STYRKE: 5+20 MG/ML
     Route: 050
     Dates: start: 20180328
  12. GABAPENTIN. [Concomitant]
     Active Substance: GABAPENTIN
     Indication: RESTLESSNESS
     Dosage: STYRKE: 100MG DOSIS: 1 TABL EFTER BEHOV H?JST 2 GANGE DAGLIGT
     Route: 048
     Dates: start: 20180328
  13. LEVOTHYROXINE SODIUM. [Concomitant]
     Active Substance: LEVOTHYROXINE SODIUM
     Indication: MYXOEDEMA
     Dosage: STYRKE: 50 MIKROGRAM  DOSIS: 100MIKROGRAM MAN-FRE OG 200MIKROGRAM ONSDAG+L?RDAG OG S?NDAG
     Route: 048

REACTIONS (9)
  - Melaena [Unknown]
  - Depressed level of consciousness [Not Recovered/Not Resolved]
  - Toxicity to various agents [Not Recovered/Not Resolved]
  - Blood pressure fluctuation [Not Recovered/Not Resolved]
  - Syncope [Not Recovered/Not Resolved]
  - Nasopharyngitis [Unknown]
  - Dehydration [Unknown]
  - Pallor [Unknown]
  - Coma [Not Recovered/Not Resolved]

NARRATIVE: CASE EVENT DATE: 20181008
